FAERS Safety Report 15729107 (Version 1)
Quarter: 2018Q4

REPORT INFORMATION
  Report Type: Spontaneous
  Country: US (occurrence: US)
  Receive Date: 20181217
  Receipt Date: 20181217
  Transmission Date: 20190205
  Serious: Yes (Hospitalization)
  Sender: FDA-Public Use
  Company Number: US-NOVAST LABORATORIES, LTD-US-2018NOV000427

PATIENT
  Age: 17 Year
  Sex: Female

DRUGS (1)
  1. BUTALBITAL, ACETAMINOPHEN, AND CAFFEINE [Suspect]
     Active Substance: ACETAMINOPHEN\BUTALBITAL\CAFFEINE
     Indication: DYSMENORRHOEA
     Dosage: UNK, 25 TABLETS

REACTIONS (3)
  - Overdose [Unknown]
  - Haemolysis [Unknown]
  - Hepatotoxicity [Unknown]
